FAERS Safety Report 5209183-7 (Version None)
Quarter: 2007Q1

REPORT INFORMATION
  Report Type: 
  Country: None (occurrence: None)
  Receive Date: 20070116
  Receipt Date: 20070105
  Transmission Date: 20070707
  Serious: Yes (Hospitalization)
  Sender: FDA-Public Use
  Company Number: 2007AP00365

PATIENT
  Age: 20249 Day
  Sex: Male
  Weight: 79 kg

DRUGS (15)
  1. CRESTOR [Suspect]
     Indication: HYPERCHOLESTEROLAEMIA
     Route: 048
     Dates: start: 20060818
  2. CRESTOR [Suspect]
     Route: 048
  3. ARTIST [Concomitant]
     Indication: HYPERTENSION
     Route: 048
     Dates: end: 20060817
  4. ARTIST [Concomitant]
     Route: 048
     Dates: start: 20060818, end: 20061226
  5. LASIX [Concomitant]
     Route: 048
     Dates: end: 20061116
  6. PANALDINE [Concomitant]
     Indication: THROMBOSIS PROPHYLAXIS
     Route: 048
     Dates: end: 20061116
  7. GASTER D [Concomitant]
     Indication: PROPHYLAXIS
     Route: 048
     Dates: end: 20061116
  8. CONIEL [Concomitant]
     Indication: HYPERTENSION
     Route: 048
     Dates: end: 20061226
  9. NORVASC [Concomitant]
     Indication: HYPERTENSION
     Route: 048
     Dates: end: 20061226
  10. ASPIRIN [Concomitant]
     Indication: THROMBOSIS PROPHYLAXIS
     Route: 048
  11. SIGMART [Concomitant]
     Route: 048
  12. OLMETEC [Concomitant]
     Indication: HYPERTENSION
     Route: 048
  13. AMARYL [Concomitant]
     Route: 048
  14. PRAVASTATIN [Concomitant]
  15. BASEN [Concomitant]
     Route: 048
     Dates: start: 20060818, end: 20060926

REACTIONS (1)
  - GASTROINTESTINAL HAEMORRHAGE [None]
